FAERS Safety Report 15616582 (Version 1)
Quarter: 2018Q4

REPORT INFORMATION
  Report Type: Spontaneous
  Country: US (occurrence: US)
  Receive Date: 20181108
  Receipt Date: 20181108
  Transmission Date: 20190205
  Serious: Yes (Hospitalization)
  Sender: FDA-Public Use
  Company Number: None

PATIENT
  Age: 60 Year
  Sex: Male

DRUGS (1)
  1. GLECAPREVIR/PIBRENTASVIR [Suspect]
     Active Substance: GLECAPREVIR\PIBRENTASVIR
     Indication: HEPATITIS C
     Route: 048
     Dates: start: 20180913, end: 20181006

REACTIONS (5)
  - Ascites [None]
  - Oedema [None]
  - Hepatic enzyme increased [None]
  - Hepatotoxicity [None]
  - Hepatic failure [None]

NARRATIVE: CASE EVENT DATE: 20181012
